FAERS Safety Report 6477866-7 (Version None)
Quarter: 2009Q4

REPORT INFORMATION
  Report Type: 
  Country: None (occurrence: None)
  Receive Date: 20091207
  Receipt Date: 20091127
  Transmission Date: 20100525
  Serious: Yes (Hospitalization)
  Sender: FDA-Public Use
  Company Number: GXKR2009FR12932

PATIENT
  Age: 58 Year
  Sex: Female

DRUGS (12)
  1. LEVOFLOXACIN (NGX) [Interacting]
     Dosage: 500 MG, QD
     Route: 048
  2. METOCLOPRAMIDE (NGX) [Interacting]
     Dosage: 10 MG, QD
     Route: 048
  3. METOCLOPRAMIDE (NGX) [Interacting]
     Dosage: 15 MG, QD (AT BED TIME)
     Route: 048
  4. METOCLOPRAMIDE (NGX) [Interacting]
     Dosage: 10 MG, BEFORE EACH MEAL
     Route: 048
  5. MIRTAZAPINE (NGX) [Interacting]
     Indication: DECREASED APPETITE
     Dosage: 7.5 MG, AT BED TIME
     Route: 048
  6. MIRTAZAPINE (NGX) [Interacting]
     Indication: POOR QUALITY SLEEP
     Dosage: 15 MG, AT BED TIME
     Route: 048
  7. CEFEPIME (NGX) [Suspect]
     Dosage: 1 G, Q12H
     Route: 042
  8. PANTOPRAZOLE [Concomitant]
     Dosage: 40 MG, QD
     Route: 048
  9. ENOXAPARIN SODIUM [Concomitant]
     Dosage: 40 MG/DAY
     Route: 058
  10. ACETAMINOPHEN [Concomitant]
     Indication: PYREXIA
     Dosage: 500 MG, PRN
     Route: 048
  11. ACETAMINOPHEN [Concomitant]
     Indication: PAIN
  12. NYSTATIN [Concomitant]
     Dosage: 5 ML/DAY
     Route: 048

REACTIONS (10)
  - AMNESIA [None]
  - CONVULSION [None]
  - DISORIENTATION [None]
  - DRUG INTERACTION [None]
  - EYE ROLLING [None]
  - FAECAL INCONTINENCE [None]
  - FOAMING AT MOUTH [None]
  - LOSS OF CONSCIOUSNESS [None]
  - RASH [None]
  - TONIC CLONIC MOVEMENTS [None]
